FAERS Safety Report 4370822-4 (Version None)
Quarter: 2004Q2

REPORT INFORMATION
  Report Type: 
  Country: None (occurrence: None)
  Receive Date: 20040601
  Receipt Date: 20040521
  Transmission Date: 20050107
  Serious: Yes (Death)
  Sender: FDA-Public Use
  Company Number: A044-002-005014

PATIENT
  Age: 92 Year
  Sex: Female

DRUGS (3)
  1. ARICEPT [Suspect]
     Indication: DEMENTIA ALZHEIMER'S TYPE
     Dosage: 5 MG, 1 IN 1 D, ORAL
     Route: 048
     Dates: start: 20040305, end: 20040308
  2. TAMOXIFEN CITRATE [Concomitant]
  3. BENDROFLUAZIDE (DENDROFLUMETHIAZIDE) [Concomitant]

REACTIONS (3)
  - ANOREXIA [None]
  - SUDDEN DEATH [None]
  - VOMITING [None]
